FAERS Safety Report 18247940 (Version 2)
Quarter: 2020Q4

REPORT INFORMATION
  Report Type: Spontaneous
  Country: PL (occurrence: PL)
  Receive Date: 20200909
  Receipt Date: 20201002
  Transmission Date: 20210113
  Serious: Yes (Other)
  Sender: FDA-Public Use
  Company Number: PL-MYLANLABS-2020M1076404

PATIENT
  Age: 73 Year
  Sex: Male

DRUGS (13)
  1. LAMIVUDINE. [Suspect]
     Active Substance: LAMIVUDINE
     Indication: HEPATITIS B
     Dosage: UNK
     Route: 065
     Dates: start: 20200602
  2. GAZYVARO [Suspect]
     Active Substance: OBINUTUZUMAB
     Dosage: 100 MILLIGRAM, MONTHLY(DOSE: 20-25 ML)
     Route: 042
     Dates: start: 20200609, end: 202007
  3. GAZYVARO [Suspect]
     Active Substance: OBINUTUZUMAB
     Indication: PRODUCT USED FOR UNKNOWN INDICATION
     Dosage: FIRST DAY STARTING DOSE
     Route: 042
     Dates: start: 20200609
  4. GASEC [Concomitant]
     Active Substance: OMEPRAZOLE SODIUM
     Dosage: UNK
     Dates: start: 20200602
  5. SOLU-MEDROL [Concomitant]
     Active Substance: METHYLPREDNISOLONE SODIUM SUCCINATE
     Indication: PREMEDICATION
     Dosage: 120 MILLIGRAM
  6. ONDANSETRON [Concomitant]
     Active Substance: ONDANSETRON
     Dosage: UNK
     Dates: start: 20200602
  7. FINASTER [Concomitant]
     Dosage: UNK
     Dates: start: 20200602
  8. MILURIT [Concomitant]
     Active Substance: ALLOPURINOL
     Dosage: UNK
  9. CAPTOPRIL. [Concomitant]
     Active Substance: CAPTOPRIL
     Dosage: UNK
     Dates: start: 20200602
  10. CHLORAMBUCIL [Suspect]
     Active Substance: CHLORAMBUCIL
     Indication: PRODUCT USED FOR UNKNOWN INDICATION
     Dosage: UNK
     Route: 065
     Dates: start: 20200702, end: 202007
  11. GAZYVARO [Suspect]
     Active Substance: OBINUTUZUMAB
     Dosage: DOSE: 20-25 ML
     Route: 042
     Dates: start: 20200702, end: 202007
  12. CLEXANE [Concomitant]
     Active Substance: ENOXAPARIN SODIUM
     Dosage: UNK
     Dates: start: 20200602
  13. LAMIVUDINE. [Concomitant]
     Active Substance: LAMIVUDINE
     Dosage: UNK

REACTIONS (18)
  - Tumour lysis syndrome [Recovered/Resolved]
  - Hyperhidrosis [Recovered/Resolved]
  - Blood pressure decreased [Recovered/Resolved]
  - Asthenia [Recovered/Resolved]
  - Pulmonary congestion [Recovered/Resolved]
  - Chills [Recovered/Resolved]
  - Blood calcium decreased [Recovered/Resolved]
  - Tachycardia [Recovered/Resolved]
  - Chest discomfort [Recovered/Resolved]
  - Dyspnoea [Recovered/Resolved]
  - Pallor [Recovered/Resolved]
  - Blood creatinine increased [Recovered/Resolved]
  - Abdominal pain [Recovered/Resolved]
  - Ill-defined disorder [Recovered/Resolved]
  - Blood phosphorus increased [Recovered/Resolved]
  - Blood uric acid increased [Recovered/Resolved]
  - Pyrexia [Recovered/Resolved]
  - Feeling cold [Recovered/Resolved]

NARRATIVE: CASE EVENT DATE: 20200609
